FAERS Safety Report 6408581-3 (Version None)
Quarter: 2009Q4

REPORT INFORMATION
  Report Type: 
  Country: None (occurrence: None)
  Receive Date: 20091021
  Receipt Date: 20091020
  Transmission Date: 20100525
  Serious: Yes (Other)
  Sender: FDA-Public Use
  Company Number: IT-ROXANE LABORATORIES, INC.-2009-RO-01077RO

PATIENT
  Age: 63 Year
  Sex: Female

DRUGS (10)
  1. MYCOPHENOLATE MOFETIL [Suspect]
     Indication: ALVEOLITIS
     Dosage: 1000 MG
  2. MYCOPHENOLATE MOFETIL [Suspect]
     Dosage: 2000 MG
  3. MYCOPHENOLATE MOFETIL [Suspect]
     Dosage: 1000 MG
  4. CYCLOPHOSPHAMIDE [Suspect]
     Indication: ALVEOLITIS
     Dates: start: 20030101
  5. ASPIRIN [Suspect]
  6. DOMPERIDONE [Suspect]
  7. PROTON PUMP INHIBITORS [Suspect]
  8. ANGIOTENSIN II ANTAGONISTS [Suspect]
  9. DIURETIC [Suspect]
  10. BISPHOSPHONATE [Suspect]

REACTIONS (4)
  - ALVEOLITIS [None]
  - FIBROSIS [None]
  - LUNG INFILTRATION [None]
  - NEUTROPENIA [None]
